FAERS Safety Report 15133939 (Version 1)
Quarter: 2018Q3

REPORT INFORMATION
  Report Type: Spontaneous
  Country: DE (occurrence: DE)
  Receive Date: 20180712
  Receipt Date: 20180712
  Transmission Date: 20181010
  Serious: Yes (Other)
  Sender: FDA-Public Use
  Company Number: DE-BAYER-2018-127456

PATIENT
  Sex: Female

DRUGS (2)
  1. GADOVIST [Suspect]
     Active Substance: GADOBUTROL
     Indication: NUCLEAR MAGNETIC RESONANCE IMAGING BRAIN
     Dosage: UNK UNK, ONCE
  2. GADOVIST [Suspect]
     Active Substance: GADOBUTROL
     Indication: BRAIN NEOPLASM MALIGNANT

REACTIONS (7)
  - Renal impairment [None]
  - Hepatic pain [None]
  - Haemorrhage [None]
  - Pruritus [None]
  - Contrast media deposition [None]
  - Pain in extremity [None]
  - Rash pustular [None]
